FAERS Safety Report 6848786-0 (Version None)
Quarter: 2010Q3

REPORT INFORMATION
  Report Type: 
  Country: None (occurrence: None)
  Receive Date: 20100716
  Receipt Date: 20070910
  Transmission Date: 20110219
  Serious: No
  Sender: FDA-Public Use
  Company Number: US-PFIZER INC-2007076472

PATIENT
  Sex: Male
  Weight: 68 kg

DRUGS (7)
  1. CHANTIX [Suspect]
     Indication: SMOKING CESSATION THERAPY
     Dates: start: 20070101
  2. TOPAMAX [Suspect]
     Indication: MIGRAINE
     Dates: end: 20070101
  3. TRAMADOL [Concomitant]
     Indication: ARTHRALGIA
  4. TYLENOL [Concomitant]
     Indication: ARTHRALGIA
  5. VICODIN [Concomitant]
  6. MULTI-VITAMINS [Concomitant]
  7. STOOL SOFTENER [Concomitant]

REACTIONS (3)
  - DRUG SCREEN FALSE POSITIVE [None]
  - EXPRESSIVE LANGUAGE DISORDER [None]
  - FEELING ABNORMAL [None]
